FAERS Safety Report 21362264 (Version 1)
Quarter: 2022Q3

REPORT INFORMATION
  Report Type: Spontaneous
  Country: PT (occurrence: PT)
  Receive Date: 20220922
  Receipt Date: 20220922
  Transmission Date: 20221026
  Serious: Yes (Other)
  Sender: FDA-Public Use
  Company Number: PT-INFARMED-J202209-133

PATIENT
  Age: 22 Year
  Sex: Male

DRUGS (4)
  1. ACETAMINOPHEN [Suspect]
     Active Substance: ACETAMINOPHEN
     Indication: Orthopaedic procedure
     Dosage: UNK
     Route: 065
     Dates: start: 20161025
  2. CEFAZOLIN SODIUM [Suspect]
     Active Substance: CEFAZOLIN SODIUM
     Indication: Orthopaedic procedure
     Dosage: UNK
     Route: 065
     Dates: start: 20161025
  3. KETOROLAC TROMETHAMINE [Suspect]
     Active Substance: KETOROLAC TROMETHAMINE
     Indication: Orthopaedic procedure
     Dosage: UNK
     Route: 065
     Dates: start: 20161025
  4. PROPOFOL [Suspect]
     Active Substance: PROPOFOL
     Indication: Orthopaedic procedure
     Dosage: UNK
     Route: 065
     Dates: start: 20161025

REACTIONS (3)
  - Periorbital oedema [Recovered/Resolved]
  - Pruritus [Recovered/Resolved]
  - Angioedema [Recovered/Resolved]

NARRATIVE: CASE EVENT DATE: 20161025
